FAERS Safety Report 4517584-5 (Version None)
Quarter: 2004Q4

REPORT INFORMATION
  Report Type: 
  Country: None (occurrence: None)
  Receive Date: 20041130
  Receipt Date: 20041112
  Transmission Date: 20050328
  Serious: Yes (Hospitalization)
  Sender: FDA-Public Use
  Company Number: 2004AP05873

PATIENT
  Age: 66 Year
  Sex: Female

DRUGS (3)
  1. NOLVADEX [Suspect]
     Indication: BREAST CANCER
     Dates: start: 19990101, end: 20041109
  2. XELODA [Suspect]
     Dosage: 800 MG DAILY PO
     Route: 048
     Dates: start: 20040601, end: 20041109
  3. HYSRON [Suspect]
     Dates: end: 20041109

REACTIONS (2)
  - INTERSTITIAL LUNG DISEASE [None]
  - INVESTIGATION ABNORMAL [None]
